FAERS Safety Report 5157168-1 (Version None)
Quarter: 2006Q4

REPORT INFORMATION
  Report Type: 
  Country: None (occurrence: None)
  Receive Date: 20061127
  Receipt Date: 20060627
  Transmission Date: 20070319
  Serious: Yes (Other)
  Sender: FDA-Public Use
  Company Number: US-ELI_LILLY_AND_COMPANY-US200606005817

PATIENT
  Age: 82 Year
  Sex: Female
  Weight: 63.492 kg

DRUGS (3)
  1. FORTEO [Suspect]
     Indication: OSTEOPOROSIS
     Dosage: 20 UG, DAILY (1/D)
     Route: 058
     Dates: start: 20051024, end: 20051101
  2. FORTEO [Suspect]
     Dosage: 20 UG, DAILY (1/D)
     Route: 058
     Dates: start: 20050101
  3. FORTEO [Suspect]
     Dosage: 20 UG, DAILY (1/D)
     Route: 058

REACTIONS (4)
  - ABDOMINAL DISCOMFORT [None]
  - BLADDER TRANSITIONAL CELL CARCINOMA [None]
  - DYSPEPSIA [None]
  - FLATULENCE [None]
